FAERS Safety Report 9249717 (Version 2)
Quarter: 2013Q2

REPORT INFORMATION
  Report Type: Spontaneous
  Country: US (occurrence: US)
  Receive Date: 20130423
  Receipt Date: 20130610
  Transmission Date: 20140414
  Serious: Yes (Other)
  Sender: FDA-Public Use
  Company Number: US-PFIZER INC-2013125114

PATIENT
  Age: 30 Year
  Sex: Female
  Weight: 86.17 kg

DRUGS (1)
  1. LYRICA [Suspect]
     Indication: FIBROMYALGIA
     Dosage: 100 MG IN MORNING, 100 MG IN AFTERNOON AND 200 MG AT NIGHT
     Dates: start: 20130404

REACTIONS (2)
  - Activities of daily living impaired [Unknown]
  - Drug ineffective [Unknown]
